FAERS Safety Report 4657445-4 (Version None)
Quarter: 2005Q2

REPORT INFORMATION
  Report Type: 
  Country: None (occurrence: None)
  Receive Date: 20050509
  Receipt Date: 20050509
  Transmission Date: 20051028
  Serious: No
  Sender: FDA-Public Use
  Company Number: None

PATIENT
  Sex: Female
  Weight: 99.7 kg

DRUGS (5)
  1. ALL-TRANS RETINOIC ACID [Suspect]
     Dosage: 22.5 MG/M2 PO BID Q12HR STARTING ON DAY 1, FOR A MAXIMUM OF 90 DAYS
     Route: 048
  2. DAUNOMYCIN [Suspect]
     Dosage: 50 MG/M2 IV BOLUS OVER 5-10 MIN QD ON DAYS 3-6.
     Route: 040
  3. CYTARABINE [Suspect]
     Dosage: 200 MG/M2/DAY CIV
     Route: 042
  4. MERCAPTOPURINE [Suspect]
     Dosage: 60 MG/M2 PO QD
     Route: 048
  5. METHOTREXATE [Suspect]
     Dosage: 20 MG/M2 PO ONCE A WEEK
     Route: 048

REACTIONS (4)
  - BIOPSY LUNG ABNORMAL [None]
  - BRONCHOSPASM [None]
  - INFLAMMATION [None]
  - PNEUMONIA [None]
